FAERS Safety Report 5515190-7 (Version None)
Quarter: 2007Q4

REPORT INFORMATION
  Report Type: 
  Country: None (occurrence: None)
  Receive Date: 20071113
  Receipt Date: 20070220
  Transmission Date: 20080405
  Serious: No
  Sender: FDA-Public Use
  Company Number: A0638152A

PATIENT
  Sex: Male

DRUGS (13)
  1. COREG [Suspect]
     Indication: LEFT VENTRICULAR DYSFUNCTION
     Dosage: 6.25MG TWICE PER DAY
     Route: 048
  2. ZETIA [Suspect]
     Indication: DRUG USE FOR UNKNOWN INDICATION
     Route: 065
  3. ATACAND [Concomitant]
  4. NEURONTIN [Concomitant]
  5. PLAVIX [Concomitant]
  6. OXYCODON [Concomitant]
  7. RED YEAST RICE [Concomitant]
  8. FLAX SEED OIL [Concomitant]
  9. NASACORT [Concomitant]
  10. NASONEX [Concomitant]
  11. FLUTICASONE PROPIONATE [Concomitant]
  12. CHROMELIN [Concomitant]
  13. KETOPROFEN [Concomitant]

REACTIONS (6)
  - BURNING SENSATION [None]
  - EYE IRRITATION [None]
  - LACRIMATION INCREASED [None]
  - MULTIPLE ALLERGIES [None]
  - MYALGIA [None]
  - RHINORRHOEA [None]
